FAERS Safety Report 4817992-9 (Version None)
Quarter: 2005Q4

REPORT INFORMATION
  Report Type: 
  Country: None (occurrence: None)
  Receive Date: 20051102
  Receipt Date: 20051021
  Transmission Date: 20060501
  Serious: Yes (Hospitalization)
  Sender: FDA-Public Use
  Company Number: 2005AP05520

PATIENT
  Age: 82 Year
  Sex: Male

DRUGS (1)
  1. MARCAINE [Suspect]
     Indication: SPINAL ANAESTHESIA
     Route: 037
     Dates: start: 20050929

REACTIONS (2)
  - INTERVERTEBRAL DISC PROTRUSION [None]
  - NEUROLOGICAL SYMPTOM [None]
